FAERS Safety Report 5964889 (Version 17)
Quarter: 2013Q1

REPORT INFORMATION
  Report Type: Spontaneous
  Country: US (occurrence: US)
  Receive Date: 20060120
  Receipt Date: 20130314
  Transmission Date: 20140127
  Serious: Yes (Other)
  Sender: FDA-Public Use
  Company Number: PHEH2006US00792

PATIENT
  Age: 38 Year
  Sex: Female
  Weight: 68.03 kg

DRUGS (31)
  1. ZOMETA [Suspect]
     Dosage: 4 MG, QD
     Dates: end: 20040422
  2. ZOMETA [Suspect]
     Dosage: 4 MG, QD
     Dates: end: 20051007
  3. FEMARA [Suspect]
     Dosage: 2.5 MG, QD
  4. TAXOTERE [Concomitant]
     Dosage: 52 MG, QW
     Route: 042
     Dates: start: 20040830, end: 20041019
  5. KYTRIL [Concomitant]
     Dates: start: 20050405
  6. AMOXICILLIN [Concomitant]
     Dates: start: 20050325
  7. GEMZAR [Concomitant]
     Route: 042
     Dates: start: 20050701, end: 20051021
  8. GEMZAR [Concomitant]
     Route: 042
     Dates: start: 20050128, end: 20050617
  9. CLEOCIN [Concomitant]
     Dosage: 300 MG, QID
     Dates: start: 200509
  10. CELEXA [Concomitant]
  11. SYNTHROID [Concomitant]
  12. NAVELBINE ^GLAXO WELLCOME^ [Concomitant]
  13. AMBIEN [Concomitant]
  14. MORPHINE [Concomitant]
  15. MILK OF MAGNESIA [Concomitant]
  16. MOTRIN [Concomitant]
     Dosage: 600 MG
  17. PHENERGAN ^AVENTIS PHARMA^ [Concomitant]
  18. ALTACE [Concomitant]
  19. GLUCOPHAGE [Concomitant]
  20. ARANESP [Concomitant]
     Indication: ANAEMIA
  21. MINERAL OIL EMULSION [Concomitant]
     Indication: CONSTIPATION
  22. EPIRUBICIN [Concomitant]
     Dates: start: 20060802
  23. VP-16 [Concomitant]
     Dosage: 50 MG, QD
  24. NEUPOGEN [Concomitant]
  25. DECADRON [Concomitant]
  26. MEGACE [Concomitant]
     Dosage: 80 MG, BID
  27. TAXOL [Concomitant]
     Route: 042
     Dates: start: 20051130
  28. AVASTIN [Concomitant]
     Dosage: 10 MG/KG
     Dates: start: 20051130
  29. ABRAXANE [Concomitant]
     Dosage: 70 MG/M2
  30. ACTOS [Concomitant]
     Indication: DIABETES MELLITUS
  31. XELODA [Concomitant]

REACTIONS (39)
  - Osteonecrosis of jaw [Unknown]
  - Bone disorder [Unknown]
  - Impaired healing [Unknown]
  - Gingival pain [Unknown]
  - Oral pain [Unknown]
  - Breath odour [Unknown]
  - Swelling [Unknown]
  - Paraesthesia [Unknown]
  - Hypoaesthesia [Unknown]
  - Tooth abscess [Unknown]
  - Gingival disorder [Unknown]
  - Metastases to bone [Not Recovered/Not Resolved]
  - Lymphadenopathy [Unknown]
  - Metastases to lymph nodes [Unknown]
  - Pathological fracture [Unknown]
  - Bone lesion [Unknown]
  - Bone erosion [Unknown]
  - Aspartate aminotransferase increased [Unknown]
  - Alanine aminotransferase increased [Unknown]
  - Hip fracture [Unknown]
  - Metastases to liver [Unknown]
  - Metastases to lung [Unknown]
  - Pulmonary mass [Unknown]
  - Metastases to central nervous system [Unknown]
  - Mucosal inflammation [Unknown]
  - Hepatic steatosis [Unknown]
  - Intervertebral disc degeneration [Unknown]
  - Intervertebral disc protrusion [Unknown]
  - Hepatic cyst [Unknown]
  - Neuropathy peripheral [Not Recovered/Not Resolved]
  - Abscess [Unknown]
  - Immune system disorder [Unknown]
  - Wound secretion [Unknown]
  - Nephrolithiasis [Unknown]
  - Fungal infection [Unknown]
  - Lichen planus [Unknown]
  - Tachycardia [Unknown]
  - Constipation [Unknown]
  - Feeling abnormal [Unknown]
